FAERS Safety Report 10077613 (Version 2)
Quarter: 2014Q2

REPORT INFORMATION
  Report Type: Spontaneous
  Country: US (occurrence: US)
  Receive Date: 20140414
  Receipt Date: 20140414
  Transmission Date: 20141212
  Serious: No
  Sender: FDA-Public Use
  Company Number: US-BANPHARM-20131977

PATIENT
  Age: 26 Year
  Sex: Female
  Weight: 90.72 kg

DRUGS (4)
  1. ALEVE LIQUID GELS 220 MG [Suspect]
     Indication: INFLAMMATION
     Route: 048
  2. LEVOTHYROXINE [Concomitant]
  3. CLARITIN [Concomitant]
  4. MICROGESTIN [Concomitant]

REACTIONS (4)
  - Dizziness [Recovered/Resolved]
  - Syncope [Not Recovered/Not Resolved]
  - Off label use [Unknown]
  - Incorrect dose administered [Unknown]
